FAERS Safety Report 6547169-0 (Version None)
Quarter: 2010Q1

REPORT INFORMATION
  Report Type: 
  Country: None (occurrence: None)
  Receive Date: 20100122
  Receipt Date: 20100112
  Transmission Date: 20100710
  Serious: Yes (Other)
  Sender: FDA-Public Use
  Company Number: GXKR2010ES00686

PATIENT
  Age: 72 Year
  Sex: Male

DRUGS (4)
  1. FLUOROURACIL [Suspect]
     Indication: COLORECTAL CANCER METASTATIC
     Dosage: 1 VL SOL EFG
     Route: 048
     Dates: start: 20080219, end: 20091019
  2. AVASTIN [Suspect]
     Indication: COLORECTAL CANCER METASTATIC
     Dosage: 1 VIAL 100 MG/ML
     Route: 042
     Dates: start: 20080219, end: 20091014
  3. IRINOTECAN HCL [Suspect]
     Indication: COLORECTAL CANCER METASTATIC
     Dosage: 20 MG/ML, UNK
     Route: 042
     Dates: start: 20080219, end: 20091014
  4. FOLINIC ACID [Concomitant]
     Dosage: 25 VIA
     Route: 065
     Dates: start: 20080219, end: 20091019

REACTIONS (1)
  - DEEP VEIN THROMBOSIS [None]
